FAERS Safety Report 22012981 (Version 2)
Quarter: 2023Q1

REPORT INFORMATION
  Report Type: Report from Study
  Country: PT (occurrence: PT)
  Receive Date: 20230220
  Receipt Date: 20230225
  Transmission Date: 20230418
  Serious: Yes (Death)
  Sender: FDA-Public Use
  Company Number: PT-002147023-NVSC2022PT303470

PATIENT
  Age: 74 Year
  Sex: Male

DRUGS (9)
  1. ENTRESTO [Suspect]
     Active Substance: SACUBITRIL\VALSARTAN
     Indication: Cardiac failure
     Dosage: 1 DOSAGE FORM, BID (EVERY 12 HOURS) (24/26 MG)
     Route: 048
     Dates: start: 20201228
  2. ENTRESTO [Suspect]
     Active Substance: SACUBITRIL\VALSARTAN
     Dosage: UNK
     Route: 065
     Dates: start: 20210213
  3. ALLOPURINOL [Concomitant]
     Active Substance: ALLOPURINOL
     Indication: Product used for unknown indication
     Dosage: 300 MG, QD (1 TABLET AT LUNCH)
     Route: 065
     Dates: start: 202110
  4. ATORVASTATIN [Concomitant]
     Active Substance: ATORVASTATIN
     Indication: Product used for unknown indication
     Dosage: 20 MG, QD (1 TABLET / DINNER)
     Route: 065
     Dates: start: 202102
  5. CANCOR [Concomitant]
     Indication: Product used for unknown indication
     Dosage: 2.5 MG, QD (1 TABLET / LUNCH)
     Route: 065
     Dates: start: 202110
  6. ELIQUIS [Concomitant]
     Active Substance: APIXABAN
     Indication: Product used for unknown indication
     Dosage: 5 MG, BID (1 TABLET 12/12 H)
     Route: 065
     Dates: start: 202102
  7. FETRIVAL [Concomitant]
     Indication: Product used for unknown indication
     Dosage: 1 DOSAGE FORM, QD (1 AMPULE/LUNCH)
     Route: 065
     Dates: start: 202104, end: 202107
  8. FUROSEMIDE [Concomitant]
     Active Substance: FUROSEMIDE
     Indication: Product used for unknown indication
     Dosage: 40 MG, QD (1 TABLET /FASTING)
     Route: 065
     Dates: start: 202103, end: 202202
  9. JANUVIA [Concomitant]
     Active Substance: SITAGLIPTIN PHOSPHATE
     Indication: Product used for unknown indication
     Dosage: 50 MG, QD (1 TABLET/DAY)
     Route: 065
     Dates: start: 202102

REACTIONS (1)
  - Death [Fatal]

NARRATIVE: CASE EVENT DATE: 20220224
